FAERS Safety Report 15323049 (Version 1)
Quarter: 2018Q3

REPORT INFORMATION
  Report Type: Spontaneous
  Country: JP (occurrence: JP)
  Receive Date: 20180827
  Receipt Date: 20180827
  Transmission Date: 20181010
  Serious: Yes (Hospitalization)
  Sender: FDA-Public Use
  Company Number: JP-SHENZHEN TECHDOW PHARMACEUTICAL CO. LTD-JP-2018TEC0000041

PATIENT

DRUGS (3)
  1. MONTEPLASE [Suspect]
     Active Substance: MONTEPLASE
     Indication: PRODUCT USED FOR UNKNOWN INDICATION
     Dosage: 80,0000 IU, UNK
     Route: 064
  2. HEPARIN SODIUM INJECTION USP, PRESERVATIVE FREE [Suspect]
     Active Substance: HEPARIN SODIUM
     Indication: PRODUCT USED FOR UNKNOWN INDICATION
     Dosage: 5000 IU, UNK
     Route: 064
  3. MONTEPLASE [Suspect]
     Active Substance: MONTEPLASE
     Dosage: 80,0000 IU, UNK (30 MINUTES AFTER FIRST DOSE)
     Route: 064

REACTIONS (1)
  - Hydrops foetalis [Unknown]
